FAERS Safety Report 7016096-7 (Version None)
Quarter: 2010Q3

REPORT INFORMATION
  Report Type: 
  Country: None (occurrence: None)
  Receive Date: 20100927
  Receipt Date: 20100914
  Transmission Date: 20110219
  Serious: Yes (Death)
  Sender: FDA-Public Use
  Company Number: NL-WATSON-2010-12559

PATIENT
  Age: 49 Year
  Sex: Female

DRUGS (3)
  1. DEXAMETHASONE (WATSON LABORATORIES) [Suspect]
     Indication: MULTIPLE MYELOMA
     Dosage: UNK
  2. VINCRISTINE [Suspect]
     Indication: MULTIPLE MYELOMA
     Dosage: UNK
  3. DOXORUBICIN HCL [Suspect]
     Indication: MULTIPLE MYELOMA
     Dosage: UNK

REACTIONS (1)
  - MESENTERIC ARTERY THROMBOSIS [None]
